FAERS Safety Report 14898987 (Version 1)
Quarter: 2018Q2

REPORT INFORMATION
  Report Type: Spontaneous
  Country: US (occurrence: US)
  Receive Date: 20180515
  Receipt Date: 20180515
  Transmission Date: 20180711
  Serious: Yes (Other)
  Sender: FDA-Public Use
  Company Number: US-AMGEN-USASP2018063836

PATIENT
  Age: 60 Year
  Sex: Female

DRUGS (10)
  1. CALCIUM [Concomitant]
     Active Substance: CALCIUM
  2. BIOTIN [Concomitant]
     Active Substance: BIOTIN
  3. CODEINE [Concomitant]
     Active Substance: CODEINE
  4. PROLIA [Suspect]
     Active Substance: DENOSUMAB
     Indication: OSTEOPOROSIS POSTMENOPAUSAL
     Dosage: UNK
     Route: 065
     Dates: start: 20140425
  5. TYLENOL [Concomitant]
     Active Substance: ACETAMINOPHEN
  6. VITAMIN D [Concomitant]
     Active Substance: CHOLECALCIFEROL
  7. TRAMADOL. [Concomitant]
     Active Substance: TRAMADOL
  8. DUEXIS [Concomitant]
     Active Substance: FAMOTIDINE\IBUPROFEN
  9. MELOXICAM. [Concomitant]
     Active Substance: MELOXICAM
  10. FISH OIL [Concomitant]
     Active Substance: FISH OIL

REACTIONS (8)
  - Dry skin [Not Recovered/Not Resolved]
  - Pain in extremity [Unknown]
  - Deafness [Unknown]
  - Skin exfoliation [Not Recovered/Not Resolved]
  - Mobility decreased [Not Recovered/Not Resolved]
  - Skin papilloma [Not Recovered/Not Resolved]
  - Back pain [Not Recovered/Not Resolved]
  - Nerve compression [Unknown]

NARRATIVE: CASE EVENT DATE: 201801
